FAERS Safety Report 8238037-7 (Version None)
Quarter: 2012Q1

REPORT INFORMATION
  Report Type: 
  Country: None (occurrence: None)
  Receive Date: 20120327
  Receipt Date: 20110712
  Transmission Date: 20120608
  Serious: Yes (Other)
  Sender: FDA-Public Use
  Company Number: US-GLAXOSMITHKLINE-A0937034A

PATIENT
  Age: 33 Year
  Sex: Female
  Weight: 90 kg

DRUGS (3)
  1. LAMICTAL [Suspect]
     Indication: BIPOLAR DISORDER
     Dosage: 150MG UNKNOWN
     Route: 048
     Dates: start: 20100101
  2. PROZAC [Concomitant]
     Indication: BIPOLAR DISORDER
     Route: 048
     Dates: start: 20110720, end: 20120113
  3. SEROQUEL [Concomitant]
     Indication: BIPOLAR DISORDER
     Route: 048
     Dates: start: 20101012, end: 20110111

REACTIONS (4)
  - PREMATURE BABY [None]
  - LIVE BIRTH [None]
  - MATERNAL EXPOSURE DURING PREGNANCY [None]
  - PLACENTA PRAEVIA [None]
